FAERS Safety Report 9601909 (Version 1)
Quarter: 2013Q4

REPORT INFORMATION
  Report Type: Spontaneous
  Country: DE (occurrence: DE)
  Receive Date: 20131007
  Receipt Date: 20131007
  Transmission Date: 20140711
  Serious: Yes (Life-Threatening, Hospitalization)
  Sender: FDA-Public Use
  Company Number: DE-JNJFOC-20131000969

PATIENT
  Age: 84 Year
  Sex: Female
  Weight: 80 kg

DRUGS (12)
  1. XARELTO [Suspect]
     Indication: PERIPHERAL ARTERIAL OCCLUSIVE DISEASE
     Route: 048
     Dates: end: 20130916
  2. ASS [Interacting]
     Indication: ANTICOAGULANT THERAPY
     Route: 065
  3. NAPROXEN [Concomitant]
     Route: 065
  4. TOREM [Concomitant]
     Indication: RENAL FAILURE
     Route: 048
     Dates: end: 20130916
  5. TARGIN [Concomitant]
     Indication: PAIN
     Route: 048
     Dates: end: 20130916
  6. ZOPICLONE [Concomitant]
     Route: 065
  7. AMLODIPINE [Concomitant]
     Indication: HYPERTENSION
     Route: 048
     Dates: end: 20130916
  8. CANDESARTAN [Concomitant]
     Indication: HYPERTENSION
     Route: 048
     Dates: end: 20130916
  9. PANTOZOL [Concomitant]
     Route: 065
  10. BEROTEC [Concomitant]
     Route: 065
  11. GABAPENTIN [Concomitant]
     Route: 065
  12. NOVAMIN [Concomitant]
     Route: 065

REACTIONS (6)
  - Fall [Recovering/Resolving]
  - Soft tissue haemorrhage [Recovering/Resolving]
  - Tracheal stenosis [Recovering/Resolving]
  - Dyspnoea [Recovering/Resolving]
  - Off label use [Unknown]
  - Drug interaction [Unknown]
